FAERS Safety Report 5456308-4 (Version None)
Quarter: 2007Q3

REPORT INFORMATION
  Report Type: 
  Country: None (occurrence: None)
  Receive Date: 20070918
  Receipt Date: 20070906
  Transmission Date: 20080115
  Serious: Yes (Hospitalization)
  Sender: FDA-Public Use
  Company Number: PL-MERCK-0709POL00012

PATIENT
  Age: 61 Year
  Sex: Female

DRUGS (4)
  1. PRIMAXIN [Suspect]
     Indication: SEPSIS
     Route: 041
  2. PRIMAXIN [Suspect]
     Indication: ACUTE SINUSITIS
     Route: 041
  3. VANCOMYCIN [Concomitant]
     Indication: SEPSIS
     Route: 065
  4. VANCOMYCIN [Concomitant]
     Indication: ACUTE SINUSITIS
     Route: 065

REACTIONS (1)
  - DRUG INEFFECTIVE [None]
